FAERS Safety Report 4847939-0 (Version None)
Quarter: 2005Q4

REPORT INFORMATION
  Report Type: 
  Country: None (occurrence: None)
  Receive Date: 20051206
  Receipt Date: 20051128
  Transmission Date: 20060501
  Serious: Yes (Death, Hospitalization)
  Sender: FDA-Public Use
  Company Number: US200511000866

PATIENT
  Age: 29 Year
  Sex: Male
  Weight: 133.8 kg

DRUGS (2)
  1. CYMBALTA [Suspect]
     Indication: MAJOR DEPRESSION
     Dosage: SEE IMAGE
     Route: 048
     Dates: end: 20050401
  2. CYMBALTA [Suspect]
     Indication: MAJOR DEPRESSION
     Dosage: SEE IMAGE
     Route: 048
     Dates: start: 20050114

REACTIONS (7)
  - CARDIAC ARREST [None]
  - DYSPNOEA [None]
  - GASTROINTESTINAL DISORDER [None]
  - HEPATIC NECROSIS [None]
  - HEPATITIS ALCOHOLIC [None]
  - MULTI-ORGAN FAILURE [None]
  - NAUSEA [None]
